FAERS Safety Report 10460679 (Version 1)
Quarter: 2014Q3

REPORT INFORMATION
  Report Type: Spontaneous
  Country: US (occurrence: US)
  Receive Date: 20140918
  Receipt Date: 20140918
  Transmission Date: 20150326
  Serious: Yes (Other)
  Sender: FDA-Public Use
  Company Number: US-TEVA-449889USA

PATIENT
  Age: 67 Year
  Sex: Male
  Weight: 90.35 kg

DRUGS (17)
  1. ASPIRIN. [Concomitant]
     Active Substance: ASPIRIN
  2. COREG CR [Concomitant]
     Active Substance: CARVEDILOL PHOSPHATE
  3. EFFIENT [Concomitant]
     Active Substance: PRASUGREL HYDROCHLORIDE
  4. PRILOSEC [Concomitant]
     Active Substance: OMEPRAZOLE MAGNESIUM
  5. JUXTAPID [Suspect]
     Active Substance: LOMITAPIDE MESYLATE
     Dosage: 5 MILLIGRAM DAILY;
     Route: 048
     Dates: start: 20130904, end: 20131119
  6. VITAMIN D [Concomitant]
     Active Substance: CHOLECALCIFEROL
  7. LOVAZA [Concomitant]
     Active Substance: OMEGA-3-ACID ETHYL ESTERS
  8. HYDROCHLOROTHIAZIDE. [Concomitant]
     Active Substance: HYDROCHLOROTHIAZIDE
  9. FOLTX [Concomitant]
     Active Substance: CYANOCOBALAMIN CO-57\FOLIC ACID\PYRIDOXINE HYDROCHLORIDE
  10. MAXIVISION [Concomitant]
  11. JUXTAPID [Suspect]
     Active Substance: LOMITAPIDE MESYLATE
     Dosage: 5 MILLIGRAM DAILY;
     Route: 048
     Dates: start: 20130614, end: 20130724
  12. IRON [Concomitant]
     Active Substance: IRON
  13. METASITOSTEROL [Concomitant]
  14. FLUOXETINE [Suspect]
     Active Substance: FLUOXETINE\FLUOXETINE HYDROCHLORIDE
     Indication: PRODUCT USED FOR UNKNOWN INDICATION
     Dosage: 30 MILLIGRAM DAILY;
     Dates: end: 20130724
  15. ALLOPURINOL. [Concomitant]
     Active Substance: ALLOPURINOL
  16. JUXTAPID [Suspect]
     Active Substance: LOMITAPIDE MESYLATE
     Indication: TYPE IIA HYPERLIPIDAEMIA
     Dosage: 5 MILLIGRAM DAILY;
     Route: 048
     Dates: start: 20130327, end: 20130421
  17. JUXTAPID [Suspect]
     Active Substance: LOMITAPIDE MESYLATE
     Dosage: 10 MILLIGRAM DAILY;
     Route: 048
     Dates: start: 20130422, end: 20130613

REACTIONS (5)
  - Alanine aminotransferase increased [Unknown]
  - Flatulence [Unknown]
  - Liver function test abnormal [Unknown]
  - Aspartate aminotransferase increased [Unknown]
  - Abdominal discomfort [Unknown]

NARRATIVE: CASE EVENT DATE: 20130613
